FAERS Safety Report 13051967 (Version 1)
Quarter: 2016Q4

REPORT INFORMATION
  Report Type: Spontaneous
  Country: US (occurrence: US)
  Receive Date: 20161221
  Receipt Date: 20161221
  Transmission Date: 20170207
  Serious: No
  Sender: FDA-Public Use
  Company Number: US-ELI_LILLY_AND_COMPANY-US201612007074

PATIENT
  Age: 27 Year
  Sex: Female

DRUGS (4)
  1. HUMALOG [Suspect]
     Active Substance: INSULIN LISPRO
     Indication: TYPE 1 DIABETES MELLITUS
     Dosage: 52 U, QD
     Route: 058
     Dates: start: 1996
  2. METFORMIN [Suspect]
     Active Substance: METFORMIN HYDROCHLORIDE
     Indication: POLYCYSTIC OVARIES
     Dosage: UNK, BID
     Route: 065
     Dates: start: 20161115
  3. HUMALOG [Suspect]
     Active Substance: INSULIN LISPRO
     Dosage: 52 U, QD
     Route: 058
  4. HUMALOG [Suspect]
     Active Substance: INSULIN LISPRO
     Dosage: 52 U, QD
     Route: 058
     Dates: start: 20161212

REACTIONS (6)
  - Drug ineffective [Unknown]
  - Blood glucose increased [Unknown]
  - Insulin resistant diabetes [Unknown]
  - Polycystic ovaries [Unknown]
  - Malaise [Unknown]
  - Blood glucose increased [Unknown]

NARRATIVE: CASE EVENT DATE: 20161115
